FAERS Safety Report 8796224 (Version 1)
Quarter: 2012Q4

REPORT INFORMATION
  Report Type: 
  Country: GB (occurrence: GB)
  Receive Date: 20120919
  Receipt Date: 20120919
  Transmission Date: 20130627
  Serious: Yes (Hospitalization)
  Sender: FDA-Public Use
  Company Number: GB-WATSON-2012-16256

PATIENT
  Age: 91 Year
  Sex: Female

DRUGS (14)
  1. LANSOPRAZOLE [Suspect]
     Indication: PRODUCT USED FOR UNKNOWN INDICATION
     Dosage: 30 mg, daily
     Route: 048
  2. TRIMETHOPRIM [Suspect]
     Indication: ANTIBIOTIC THERAPY
     Dosage: 200 mg, bid
     Route: 048
     Dates: start: 20110104, end: 20110110
  3. TRIMETHOPRIM [Suspect]
     Dosage: UNK
     Route: 048
     Dates: start: 20100416, end: 20100419
  4. METRONIDAZOLE [Suspect]
     Indication: ANTIBIOTIC THERAPY
     Dosage: 400 mg, tid
     Route: 048
     Dates: start: 20110322, end: 20110329
  5. PHENOXYMETHYLPENICILLIN [Suspect]
     Indication: ANTIBIOTIC THERAPY
     Dosage: 500 mg, qid
     Route: 048
     Dates: start: 20101011, end: 20101018
  6. FLUCLOXACILLIN [Suspect]
     Indication: ANTIBIOTIC THERAPY
     Dosage: 500 mg, qid, 7/7 course
     Route: 048
     Dates: start: 20101221, end: 20101228
  7. FLUCLOXACILLIN [Suspect]
     Dosage: 7 day course in April/May 2010
     Route: 048
     Dates: start: 2010, end: 2010
  8. FLUCLOXACILLIN [Suspect]
     Dosage: 500 mg, qid
     Route: 048
     Dates: end: 20111018
  9. FUROSEMIDE [Concomitant]
     Indication: PRODUCT USED FOR UNKNOWN INDICATION
     Dosage: unk
     Route: 065
  10. LISINOPRIL [Concomitant]
     Indication: PRODUCT USED FOR UNKNOWN INDICATION
     Dosage: unk
     Route: 065
  11. ASPIRIN [Concomitant]
     Indication: PRODUCT USED FOR UNKNOWN INDICATION
     Dosage: unk
     Route: 065
  12. DALTEPARIN [Concomitant]
     Indication: PRODUCT USED FOR UNKNOWN INDICATION
     Dosage: unk
     Route: 065
  13. SPIRONOLACTONE [Concomitant]
     Indication: PRODUCT USED FOR UNKNOWN INDICATION
     Dosage: unk
     Route: 065
  14. SANDO K                            /00031402/ [Concomitant]
     Indication: PRODUCT USED FOR UNKNOWN INDICATION
     Dosage: unk
     Route: 065

REACTIONS (2)
  - Clostridium difficile infection [Unknown]
  - Diarrhoea [Unknown]
